FAERS Safety Report 17003339 (Version 2)
Quarter: 2019Q4

REPORT INFORMATION
  Report Type: Spontaneous
  Country: TH (occurrence: TH)
  Receive Date: 20191107
  Receipt Date: 20191220
  Transmission Date: 20200122
  Serious: Yes (Death, Other)
  Sender: FDA-Public Use
  Company Number: TH-ASTELLAS-2019US043781

PATIENT
  Age: 70 Year
  Sex: Female

DRUGS (5)
  1. MYCAMINE [Suspect]
     Active Substance: MICAFUNGIN SODIUM
     Indication: SYSTEMIC CANDIDA
     Route: 042
     Dates: start: 20190921, end: 20190930
  2. CYTARABINE. [Concomitant]
     Active Substance: CYTARABINE
     Indication: MYELOPROLIFERATIVE NEOPLASM
     Dosage: UNK UNK, UNKNOWN FREQ.
     Route: 065
  3. IDARUBICIN [Concomitant]
     Active Substance: IDARUBICIN
     Indication: MYELOPROLIFERATIVE NEOPLASM
     Dosage: UNK UNK, UNKNOWN FREQ. (FOR CYCLE 3)
     Route: 065
  4. METRONIDAZOLE. [Concomitant]
     Active Substance: METRONIDAZOLE
     Indication: PRODUCT USED FOR UNKNOWN INDICATION
     Dosage: UNK UNK, UNKNOWN FREQ.
     Route: 065
     Dates: start: 20190916, end: 20190925
  5. MEROPENEM. [Concomitant]
     Active Substance: MEROPENEM
     Indication: PRODUCT USED FOR UNKNOWN INDICATION
     Dosage: UNK UNK, UNKNOWN FREQ.
     Route: 065
     Dates: start: 20190913, end: 20190930

REACTIONS (2)
  - Sepsis [Fatal]
  - Acinetobacter infection [Fatal]

NARRATIVE: CASE EVENT DATE: 20190930
